FAERS Safety Report 17806734 (Version 1)
Quarter: 2020Q2

REPORT INFORMATION
  Report Type: Spontaneous
  Country: US (occurrence: US)
  Receive Date: 20200519
  Receipt Date: 20200519
  Transmission Date: 20200714
  Serious: Yes (Death)
  Sender: FDA-Public Use
  Company Number: None

PATIENT
  Age: 96 Year
  Sex: Female
  Weight: 44.5 kg

DRUGS (15)
  1. SENNA 17.2 MG [Concomitant]
     Dates: start: 20200514, end: 20200519
  2. METHYLPREDNISOLONE 40 MG INJECTION [Concomitant]
     Dates: start: 20200517, end: 20200519
  3. VANCOMYCIN [Concomitant]
     Active Substance: VANCOMYCIN
     Dates: start: 20200515, end: 20200517
  4. CEFEPIME 1 GRAM [Concomitant]
     Dates: start: 20200514, end: 20200519
  5. PANTOPRAZOLE 40 MG TABLET [Concomitant]
     Active Substance: PANTOPRAZOLE
     Dates: start: 20200514, end: 20200519
  6. TORSEMIDE 20 MG [Concomitant]
     Dates: start: 20200515, end: 20200515
  7. ERGOCALCIFEROL 50,000 UNITS [Concomitant]
     Dates: start: 20200514, end: 20200519
  8. MIRTAZAPINE 7.5 MG [Concomitant]
     Active Substance: MIRTAZAPINE
     Dates: start: 20200514, end: 20200517
  9. NOREPINEPHRINE 8 MG / 250 ML [Concomitant]
     Dates: start: 20200515, end: 20200515
  10. ZINC SULFATE 220 MG [Concomitant]
     Dates: start: 20200514, end: 20200519
  11. ASCORBIC ACID 500 MG [Concomitant]
     Dates: start: 20200514, end: 20200519
  12. HYDROMORPHONE 0.2 MG IV [Concomitant]
     Dates: start: 20200518, end: 20200519
  13. REMDESIVIR EUA [Suspect]
     Active Substance: REMDESIVIR
     Indication: SARS-COV-1 TEST POSITIVE
     Route: 042
     Dates: start: 20200515, end: 20200518
  14. SODIUM CHLORIDE 0.9% NEB [Concomitant]
     Dates: start: 20200514, end: 20200519
  15. MORPHINE 4 MG/ML INJECTION [Concomitant]
     Dates: start: 20200514, end: 20200518

REACTIONS (3)
  - Electrocardiogram abnormal [None]
  - Renal failure [None]
  - Respiratory failure [None]

NARRATIVE: CASE EVENT DATE: 20200519
